FAERS Safety Report 24548001 (Version 1)
Quarter: 2024Q4

REPORT INFORMATION
  Report Type: Spontaneous
  Country: SK (occurrence: SK)
  Receive Date: 20241025
  Receipt Date: 20241025
  Transmission Date: 20250115
  Serious: Yes (Other)
  Sender: ADC THERAPEUTICS
  Company Number: SK-BIOVITRUM-2024-SK-013084

PATIENT
  Sex: Male

DRUGS (1)
  1. ZYNLONTA [Suspect]
     Active Substance: LONCASTUXIMAB TESIRINE-LPYL
     Indication: Product used for unknown indication
     Dosage: UNK
     Dates: start: 202404

REACTIONS (2)
  - Pancytopenia [Unknown]
  - Therapeutic product effect incomplete [Unknown]
